FAERS Safety Report 25705988 (Version 1)
Quarter: 2025Q3

REPORT INFORMATION
  Report Type: Spontaneous
  Country: US (occurrence: None)
  Receive Date: 20250819
  Receipt Date: 20250819
  Transmission Date: 20251020
  Serious: Yes (Life-Threatening, Hospitalization)
  Sender: FDA-CTU
  Company Number: None

PATIENT
  Age: 87 Year
  Sex: Female

DRUGS (2)
  1. RELAFEN [Suspect]
     Active Substance: NABUMETONE
  2. RELAFEN [Concomitant]
     Active Substance: NABUMETONE

REACTIONS (8)
  - Haematochezia [None]
  - Haemoglobin decreased [None]
  - Haematocrit decreased [None]
  - Diverticulum intestinal [None]
  - Diverticulum intestinal haemorrhagic [None]
  - Haemorrhoids [None]
  - Haemorrhoids [None]
  - Syncope [None]

NARRATIVE: CASE EVENT DATE: 20240114
